FAERS Safety Report 7281876-X (Version None)
Quarter: 2011Q1

REPORT INFORMATION
  Report Type: 
  Country: None (occurrence: None)
  Receive Date: 20110208
  Receipt Date: 20110203
  Transmission Date: 20110831
  Serious: Yes (Hospitalization, Other)
  Sender: FDA-Public Use
  Company Number: US-PFIZER INC-2010158601

PATIENT
  Sex: Female

DRUGS (7)
  1. TRAZODONE [Concomitant]
     Indication: SLEEP DISORDER
     Dosage: UNK
     Dates: start: 20010101
  2. DIOVAN HCT [Concomitant]
     Indication: HYPERTENSION
     Dosage: UNK
     Dates: start: 20000101
  3. XANAX [Concomitant]
     Indication: ANXIETY
     Dosage: UNK
     Dates: start: 20020101
  4. ACETYLSALICYLIC ACID [Concomitant]
     Dosage: UNK
     Dates: start: 20000101
  5. CHANTIX [Suspect]
     Indication: SMOKING CESSATION THERAPY
     Dosage: 0.5/1MG
     Dates: start: 20080801, end: 20081101
  6. AMBIEN [Concomitant]
     Indication: SLEEP DISORDER
     Dosage: UNK
     Dates: start: 20010101
  7. TOPROL-XL [Concomitant]
     Indication: HYPERTENSION
     Dosage: UNK
     Dates: start: 20000101

REACTIONS (13)
  - INTENTIONAL OVERDOSE [None]
  - ANXIETY [None]
  - CONFUSIONAL STATE [None]
  - DYSPHONIA [None]
  - SUICIDE ATTEMPT [None]
  - AGITATION [None]
  - VERTIGO [None]
  - INSOMNIA [None]
  - AMNESIA [None]
  - IRRITABILITY [None]
  - ANGER [None]
  - DEPRESSION [None]
  - NIGHTMARE [None]
